FAERS Safety Report 22607002 (Version 1)
Quarter: 2023Q2

REPORT INFORMATION
  Report Type: Spontaneous
  Country: US (occurrence: US)
  Receive Date: 20230615
  Receipt Date: 20230615
  Transmission Date: 20230721
  Serious: No
  Sender: FDA-Public Use
  Company Number: US-PFIZER INC-202300218978

PATIENT
  Age: 43 Year

DRUGS (1)
  1. PAXLOVID [Suspect]
     Active Substance: NIRMATRELVIR\RITONAVIR
     Dosage: UNK

REACTIONS (5)
  - Malaise [Unknown]
  - Blister [Unknown]
  - Abdominal pain [Unknown]
  - Nervousness [Unknown]
  - Musculoskeletal stiffness [Unknown]
